FAERS Safety Report 9262447 (Version 3)
Quarter: 2013Q3

REPORT INFORMATION
  Report Type: Spontaneous
  Country: KR (occurrence: KR)
  Receive Date: 20130430
  Receipt Date: 20130711
  Transmission Date: 20140515
  Serious: Yes (Life-Threatening, Other)
  Sender: FDA-Public Use
  Company Number: KR-RANBAXY-2013RR-68183

PATIENT
  Age: 69 Year
  Sex: Female

DRUGS (1)
  1. FLECAINIDE [Suspect]
     Indication: ATRIAL FIBRILLATION
     Dosage: 200 MG/DAY
     Route: 065

REACTIONS (5)
  - Bradycardia [Recovering/Resolving]
  - Torsade de pointes [Recovering/Resolving]
  - Ventricular tachycardia [Unknown]
  - Atrioventricular conduction time shortened [Unknown]
  - Electrocardiogram QT prolonged [Unknown]
